FAERS Safety Report 16731742 (Version 2)
Quarter: 2019Q3

REPORT INFORMATION
  Report Type: Spontaneous
  Country: FR (occurrence: FR)
  Receive Date: 20190822
  Receipt Date: 20190910
  Transmission Date: 20191005
  Serious: Yes (Hospitalization)
  Sender: FDA-Public Use
  Company Number: FR-AMERICAN REGENT INC-2019001837

PATIENT
  Age: 82 Year
  Sex: Female
  Weight: 48 kg

DRUGS (1)
  1. VENOFER [Suspect]
     Active Substance: IRON SUCROSE
     Indication: ANAEMIA
     Dosage: 300 MILLIGRAM
     Dates: start: 20190806

REACTIONS (4)
  - Product storage error [Unknown]
  - Pyrexia [Recovered/Resolved]
  - Blood pressure increased [Unknown]
  - Respiratory distress [Recovered/Resolved]

NARRATIVE: CASE EVENT DATE: 20190806
